FAERS Safety Report 7475746-1 (Version None)
Quarter: 2011Q2

REPORT INFORMATION
  Report Type: 
  Country: None (occurrence: None)
  Receive Date: 20110510
  Receipt Date: 20110510
  Transmission Date: 20111010
  Serious: No
  Sender: FDA-Public Use
  Company Number: None

PATIENT
  Sex: Female
  Weight: 80.7403 kg

DRUGS (1)
  1. LEVAQUIN [Suspect]
     Indication: RESPIRATORY TRACT INFECTION
     Dosage: 1 TABLET EVERY DAY PO
     Route: 048
     Dates: start: 20110410, end: 20110415

REACTIONS (2)
  - UPPER LIMB FRACTURE [None]
  - CONVULSION [None]
